FAERS Safety Report 7305344-1 (Version None)
Quarter: 2011Q1

REPORT INFORMATION
  Report Type: 
  Country: None (occurrence: None)
  Receive Date: 20110222
  Receipt Date: 20110209
  Transmission Date: 20110831
  Serious: Yes (Hospitalization, Other)
  Sender: FDA-Public Use
  Company Number: PHFR2011GB01119

PATIENT
  Age: 51 Year
  Sex: Male
  Weight: 92.7 kg

DRUGS (4)
  1. LITHIUM [Suspect]
     Indication: SCHIZOAFFECTIVE DISORDER
     Dosage: 900 MG, QD
     Dates: start: 20050101, end: 20101230
  2. CLOZAPINE [Suspect]
     Indication: SCHIZOAFFECTIVE DISORDER
     Dosage: 200 MG, BID
     Route: 048
     Dates: start: 20050101, end: 20101230
  3. CITALOPRAM [Concomitant]
     Indication: SCHIZOAFFECTIVE DISORDER
     Dosage: 10 MG, QD
     Route: 048
     Dates: end: 20110106
  4. VALPROATE SEMISODIUM [Concomitant]
     Indication: SCHIZOAFFECTIVE DISORDER
     Dosage: 1 DF, BID
     Route: 048

REACTIONS (9)
  - PSYCHOMOTOR SKILLS IMPAIRED [None]
  - CONSCIOUSNESS FLUCTUATING [None]
  - HEMIPARESIS [None]
  - CONVULSIVE THRESHOLD LOWERED [None]
  - NEUROTOXICITY [None]
  - FEELING ABNORMAL [None]
  - LOWER RESPIRATORY TRACT INFECTION [None]
  - COMA [None]
  - DYSARTHRIA [None]
